FAERS Safety Report 9307417 (Version 1)
Quarter: 2013Q2

REPORT INFORMATION
  Report Type: Spontaneous
  Country: CN (occurrence: CN)
  Receive Date: 20130524
  Receipt Date: 20130524
  Transmission Date: 20140414
  Serious: Yes (Other)
  Sender: FDA-Public Use
  Company Number: CN-JNJFOC-20130508525

PATIENT
  Age: 67 Year
  Sex: Male

DRUGS (1)
  1. DUROGESIC D-TRANS [Suspect]
     Indication: CANCER PAIN
     Route: 062
     Dates: start: 20120721, end: 20120722

REACTIONS (3)
  - Respiratory depression [Recovering/Resolving]
  - Depressed level of consciousness [Unknown]
  - Miosis [Unknown]
